FAERS Safety Report 12899704 (Version 1)
Quarter: 2016Q4

REPORT INFORMATION
  Report Type: Spontaneous
  Country: US (occurrence: US)
  Receive Date: 20161031
  Receipt Date: 20161031
  Transmission Date: 20170207
  Serious: Yes (Disabling)
  Sender: FDA-Public Use
  Company Number: None

PATIENT
  Age: 73 Year
  Sex: Female
  Weight: 66.6 kg

DRUGS (6)
  1. ATORVASTATIN [Concomitant]
     Active Substance: ATORVASTATIN
  2. SULFAMETHOXAZOLE/TRIMETHOPRIM (BACTRIM) (SULFAMETHOXAZOLE, TRIMETHOPRIM) [Suspect]
     Active Substance: SULFAMETHOXAZOLE\TRIMETHOPRIM
     Indication: URINARY TRACT INFECTION
     Dosage: ?          QUANTITY:20 TABLET(S);?
     Route: 048
     Dates: start: 20160926, end: 20161004
  3. VITAMIN D [Concomitant]
     Active Substance: CHOLECALCIFEROL
  4. VITAMIN E [Concomitant]
     Active Substance: .ALPHA.-TOCOPHEROL
  5. LEVOTHYROXINE. [Concomitant]
     Active Substance: LEVOTHYROXINE
  6. CALCIUM [Concomitant]
     Active Substance: CALCIUM

REACTIONS (14)
  - Paraesthesia [None]
  - Asthenia [None]
  - Burning sensation [None]
  - Fatigue [None]
  - Chills [None]
  - Pain [None]
  - Rash generalised [None]
  - Nausea [None]
  - Headache [None]
  - Tremor [None]
  - Blood sodium decreased [None]
  - Pyrexia [None]
  - Vomiting [None]
  - Rash pruritic [None]

NARRATIVE: CASE EVENT DATE: 20160930
